FAERS Safety Report 12374884 (Version 1)
Quarter: 2016Q2

REPORT INFORMATION
  Report Type: Spontaneous
  Country: US (occurrence: None)
  Receive Date: 20160516
  Receipt Date: 20160516
  Transmission Date: 20160815
  Serious: Yes (Disabling)
  Sender: FDA-Public Use
  Company Number: None

PATIENT
  Age: 28 Year
  Sex: Female
  Weight: 90.72 kg

DRUGS (13)
  1. GABAPENTIN. [Concomitant]
     Active Substance: GABAPENTIN
  2. SUMATRIPTAN. [Concomitant]
     Active Substance: SUMATRIPTAN
  3. IBUPROFEN. [Concomitant]
     Active Substance: IBUPROFEN
  4. VITAMIN D [Concomitant]
     Active Substance: CHOLECALCIFEROL
  5. AVELOX [Suspect]
     Active Substance: MOXIFLOXACIN HYDROCHLORIDE
     Indication: SKIN INFECTION
     Route: 048
     Dates: start: 20111024, end: 20111031
  6. OPANA IR [Concomitant]
  7. OPANA ER [Concomitant]
     Active Substance: OXYMORPHONE HYDROCHLORIDE
  8. TIZANIDINE. [Concomitant]
     Active Substance: TIZANIDINE
  9. MAGNESIUM [Concomitant]
     Active Substance: MAGNESIUM
  10. IRON [Concomitant]
     Active Substance: IRON
  11. VITAMIN B COMPLEX [Concomitant]
     Active Substance: CYANOCOBALAMIN\DEXPANTHENOL\NIACINAMIDE\PYRIDOXINE HYDROCHLORIDE\RIBOFLAVIN 5^-PHOSPHATE SODIUM\THIAMINE HYDROCHLORIDE\VITAMIN B COMPLEX
  12. LIDOCAINE. [Concomitant]
     Active Substance: LIDOCAINE
  13. HYDROXYZINE [Concomitant]
     Active Substance: HYDROXYZINE\HYDROXYZINE HYDROCHLORIDE

REACTIONS (9)
  - Autonomic nervous system imbalance [None]
  - Spinal pain [None]
  - Hypoaesthesia [None]
  - Arthralgia [None]
  - Dysstasia [None]
  - Pain [None]
  - Tendon disorder [None]
  - Paraesthesia [None]
  - Small fibre neuropathy [None]

NARRATIVE: CASE EVENT DATE: 20111024
